FAERS Safety Report 4726967-X (Version None)
Quarter: 2005Q3

REPORT INFORMATION
  Report Type: 
  Country: None (occurrence: None)
  Receive Date: 20050726
  Receipt Date: 20050726
  Transmission Date: 20060218
  Serious: Yes (Hospitalization)
  Sender: FDA-Public Use
  Company Number: None

PATIENT
  Age: 62 Year
  Sex: Male

DRUGS (10)
  1. CITALOPRAM [Suspect]
     Indication: DEPRESSION
     Dosage: 40MG PO QD
     Route: 048
     Dates: start: 20050413, end: 20050707
  2. FLUOXETINE [Suspect]
     Indication: DEPRESSION
     Dosage: 20MG PO QD
     Route: 048
     Dates: start: 20040922, end: 20050413
  3. THIAMINE [Concomitant]
  4. FOLIC ACID [Concomitant]
  5. DOXAZOSIN [Concomitant]
  6. KETOCONAZOLE [Concomitant]
  7. LISINOPRIL [Concomitant]
  8. HYDROCHLOROTHIAZIDE [Concomitant]
  9. ASPIRIN [Concomitant]
  10. CITALOPRAM [Concomitant]

REACTIONS (2)
  - BLOOD SODIUM DECREASED [None]
  - SYNCOPE [None]
